FAERS Safety Report 5036460-5 (Version None)
Quarter: 2006Q2

REPORT INFORMATION
  Report Type: 
  Country: None (occurrence: None)
  Receive Date: 20060626
  Receipt Date: 20041025
  Transmission Date: 20061013
  Serious: Yes (Hospitalization)
  Sender: FDA-Public Use
  Company Number: MPS1-10553

PATIENT
  Age: 3 Year
  Sex: Male
  Weight: 13.8 kg

DRUGS (1)
  1. ALDURAZYME [Suspect]
     Indication: MUCOPOLYSACCHARIDOSIS I
     Dosage: 1450 UNITS QWK IV
     Route: 042
     Dates: start: 20030228

REACTIONS (3)
  - BRONCHOPNEUMOPATHY [None]
  - NASOPHARYNGITIS [None]
  - RESPIRATORY SYNCYTIAL VIRUS INFECTION [None]
